FAERS Safety Report 14798011 (Version 2)
Quarter: 2018Q2

REPORT INFORMATION
  Report Type: Report from Study
  Country: None (occurrence: BE)
  Receive Date: 20180424
  Receipt Date: 20180429
  Transmission Date: 20180711
  Serious: Yes (Hospitalization, Other)
  Sender: FDA-Public Use
  Company Number: BE-ABBVIE-18K-013-2322114-00

PATIENT
  Age: 71 Year
  Sex: Female

DRUGS (5)
  1. DUODOPA [Suspect]
     Active Substance: CARBIDOPA\LEVODOPA
     Indication: PARKINSON^S DISEASE
     Dosage: MD=7.5ML?CD=2.6ML/HR DURING 16 HOURS ?ED=1ML
     Route: 050
     Dates: start: 20180115, end: 20180409
  2. DUODOPA [Suspect]
     Active Substance: CARBIDOPA\LEVODOPA
     Dosage: MD=7.5ML?CD=2.2ML/HR DURING 16HRS ?ED=1 ML
     Route: 050
     Dates: start: 20180412, end: 20180420
  3. DUODOPA [Suspect]
     Active Substance: CARBIDOPA\LEVODOPA
     Dosage: MD=7.5ML?CD=1.7ML/HR DURING 16HRS?ED=1.2ML
     Route: 050
     Dates: start: 201804
  4. DUODOPA [Suspect]
     Active Substance: CARBIDOPA\LEVODOPA
     Dosage: MD=7.5ML?CD=1.8ML/HR DURING 16HRS?ED=1.2ML
     Route: 050
     Dates: start: 20180420, end: 201804
  5. DUODOPA [Suspect]
     Active Substance: CARBIDOPA\LEVODOPA
     Dosage: MD=7.5ML?CD=2.6ML/HR DURING 16HRS ?ED=1.5ML
     Route: 050
     Dates: start: 20180409, end: 20180412

REACTIONS (10)
  - Pain [Unknown]
  - Anxiety [Not Recovered/Not Resolved]
  - Stress [Unknown]
  - Pain in extremity [Unknown]
  - Myalgia [Unknown]
  - Gait disturbance [Unknown]
  - Psychiatric decompensation [Unknown]
  - Panic attack [Unknown]
  - Dyskinesia [Not Recovered/Not Resolved]
  - Drug effect incomplete [Not Recovered/Not Resolved]

NARRATIVE: CASE EVENT DATE: 20180411
